FAERS Safety Report 7011392-1 (Version None)
Quarter: 2010Q3

REPORT INFORMATION
  Report Type: 
  Country: None (occurrence: None)
  Receive Date: 20100923
  Receipt Date: 20090106
  Transmission Date: 20110219
  Serious: No
  Sender: FDA-Public Use
  Company Number: US-WYE-H07611309

PATIENT
  Age: 75 Year
  Sex: Female

DRUGS (2)
  1. PREMARIN [Suspect]
     Indication: HORMONE REPLACEMENT THERAPY
     Route: 048
  2. VERAPAMIL [Concomitant]

REACTIONS (2)
  - CHILLS [None]
  - DRUG INEFFECTIVE [None]
